FAERS Safety Report 6090610-0 (Version None)
Quarter: 2009Q1

REPORT INFORMATION
  Report Type: 
  Country: None (occurrence: None)
  Receive Date: 20090224
  Receipt Date: 20090115
  Transmission Date: 20090719
  Serious: No
  Sender: FDA-Public Use
  Company Number: US-ABBOTT-09P-163-0498161-00

PATIENT
  Sex: Female

DRUGS (2)
  1. SIMCOR [Suspect]
     Indication: BLOOD TRIGLYCERIDES INCREASED
     Dosage: 500MG/20MG 1 TAB
     Route: 048
     Dates: start: 20081201, end: 20090101
  2. SIMCOR [Suspect]
     Dosage: 500MG/20MG 2 TABS
     Route: 048
     Dates: start: 20090102

REACTIONS (1)
  - DYSPNOEA [None]
